FAERS Safety Report 18442612 (Version 6)
Quarter: 2021Q2

REPORT INFORMATION
  Report Type: Report from Study
  Country: BR (occurrence: BR)
  Receive Date: 20201029
  Receipt Date: 20210611
  Transmission Date: 20210717
  Serious: Yes (Life-Threatening, Hospitalization, Other)
  Sender: FDA-Public Use
  Company Number: NVSC2020BR288285

PATIENT
  Age: 57 Year
  Sex: Female
  Weight: 60 kg

DRUGS (6)
  1. FULVESTRANT. [Suspect]
     Active Substance: FULVESTRANT
     Indication: BREAST CANCER METASTATIC
     Dosage: 500 MG (EVERY 15 DAYS)
     Route: 030
     Dates: start: 20201001
  2. KISQALI [Suspect]
     Active Substance: RIBOCICLIB
     Indication: BREAST CANCER METASTATIC
     Dosage: 1 DF, QD (600 MG TABLET, ONCE PER DAY FOR 21 DAYS)
     Route: 048
  3. KISQALI [Suspect]
     Active Substance: RIBOCICLIB
     Dosage: 3 DF, QD (3 TABLETS OF 200 MG) (ONCE PER DAY CONTINUOUS USE FOR 21 DAYS WITHOUT 7 DAYS BREAK)
     Route: 048
     Dates: end: 20201109
  4. DENOSUMAB [Concomitant]
     Active Substance: DENOSUMAB
     Indication: PRODUCT USED FOR UNKNOWN INDICATION
     Dosage: UNK
     Route: 065
  5. KISQALI [Suspect]
     Active Substance: RIBOCICLIB
     Dosage: 3 DF, Q3W (EVERY 21 DAYS WITH 7 DAYS OF BREAK)
     Route: 048
     Dates: start: 20201030
  6. LETROZOLE. [Suspect]
     Active Substance: LETROZOLE
     Indication: BREAST CANCER
     Dosage: UNK
     Route: 065

REACTIONS (18)
  - Metastases to lung [Unknown]
  - Skin hyperpigmentation [Not Recovered/Not Resolved]
  - Inappropriate schedule of product administration [Unknown]
  - COVID-19 [Unknown]
  - Renal impairment [Unknown]
  - Dry skin [Recovering/Resolving]
  - Pruritus [Recovering/Resolving]
  - Chills [Unknown]
  - Infection [Not Recovered/Not Resolved]
  - Bacterial infection [Recovered/Resolved]
  - Decreased immune responsiveness [Unknown]
  - Pulmonary oedema [Unknown]
  - Diarrhoea [Unknown]
  - Dyspnoea [Unknown]
  - Thrombosis [Recovered/Resolved]
  - Pneumonitis [Unknown]
  - Limb injury [Recovering/Resolving]
  - Increased bronchial secretion [Unknown]

NARRATIVE: CASE EVENT DATE: 202009
